FAERS Safety Report 5061428-2 (Version None)
Quarter: 2006Q3

REPORT INFORMATION
  Report Type: 
  Country: None (occurrence: None)
  Receive Date: 20060719
  Receipt Date: 20060719
  Transmission Date: 20061208
  Serious: Yes (Hospitalization)
  Sender: FDA-Public Use
  Company Number: None

PATIENT
  Age: 60 Year
  Sex: Male

DRUGS (5)
  1. METOPROLOL TARTRATE [Suspect]
     Indication: HYPERTENSION
     Dosage: 25 MG QD
  2. B 12 [Concomitant]
  3. OMEPRAZOLE [Concomitant]
  4. DOSS [Concomitant]
  5. BACLOFEN [Concomitant]

REACTIONS (1)
  - BRADYCARDIA [None]
